FAERS Safety Report 7347902-4 (Version None)
Quarter: 2011Q1

REPORT INFORMATION
  Report Type: 
  Country: None (occurrence: None)
  Receive Date: 20110311
  Receipt Date: 20110228
  Transmission Date: 20110831
  Serious: Yes (Hospitalization, Other)
  Sender: FDA-Public Use
  Company Number: US-ELI_LILLY_AND_COMPANY-US201011004114

PATIENT
  Sex: Female
  Weight: 68.027 kg

DRUGS (7)
  1. COUMADIN [Concomitant]
  2. DIOVAN [Concomitant]
  3. CYMBALTA [Suspect]
     Indication: ANXIETY DISORDER
     Dosage: UNK, UNKNOWN
  4. HUMALOG [Suspect]
     Indication: DIABETES MELLITUS
     Dosage: UNK, UNKNOWN
  5. ANTIHYPERTENSIVES [Concomitant]
  6. INSULIN [Concomitant]
  7. FORTEO [Suspect]
     Indication: OSTEOPOROSIS
     Dosage: 20 UG, DAILY (1/D)
     Route: 058
     Dates: start: 20090601

REACTIONS (14)
  - DRUG HYPERSENSITIVITY [None]
  - SKIN DISCOLOURATION [None]
  - FALL [None]
  - DIABETIC FOOT [None]
  - ASTHENIA [None]
  - DECREASED APPETITE [None]
  - WOUND INFECTION [None]
  - DECUBITUS ULCER [None]
  - GAIT DISTURBANCE [None]
  - FATIGUE [None]
  - ANKLE FRACTURE [None]
  - WOUND DRAINAGE [None]
  - DIABETES MELLITUS [None]
  - RASH [None]
